FAERS Safety Report 6944506-X (Version None)
Quarter: 2010Q3

REPORT INFORMATION
  Report Type: 
  Country: None (occurrence: None)
  Receive Date: 20100827
  Receipt Date: 20100817
  Transmission Date: 20110219
  Serious: Yes (Other)
  Sender: FDA-Public Use
  Company Number: CN-PFIZER INC-2010102907

PATIENT
  Age: 26 Month
  Sex: Male
  Weight: 12.5 kg

DRUGS (1)
  1. ZITHROMAX [Suspect]
     Indication: LARYNGITIS
     Dosage: 100 MG, 1X/DAY
     Route: 048

REACTIONS (2)
  - BLISTER [None]
  - RASH [None]
